FAERS Safety Report 14199895 (Version 4)
Quarter: 2024Q2

REPORT INFORMATION
  Report Type: Spontaneous
  Country: IT (occurrence: IT)
  Receive Date: 20171117
  Receipt Date: 20240510
  Transmission Date: 20240716
  Serious: Yes (Other)
  Sender: FDA-Public Use
  Company Number: IT-JNJFOC-20171115030

PATIENT
  Age: 33 Year
  Sex: Male
  Weight: 100 kg

DRUGS (25)
  1. HALDOL [Suspect]
     Active Substance: HALOPERIDOL
     Indication: Product used for unknown indication
     Route: 048
     Dates: start: 20171112, end: 20171112
  2. HALDOL [Suspect]
     Active Substance: HALOPERIDOL
     Route: 048
     Dates: start: 20171112, end: 20171112
  3. RISPERDAL [Suspect]
     Active Substance: RISPERIDONE
     Indication: Product used for unknown indication
     Route: 048
     Dates: start: 20171112, end: 20171112
  4. RISPERDAL [Suspect]
     Active Substance: RISPERIDONE
     Route: 048
     Dates: start: 20171112, end: 20171112
  5. RISPERDAL [Suspect]
     Active Substance: RISPERIDONE
     Dosage: NUMBER OF UNITS IN THE INTERVAL = 1
     Route: 048
     Dates: start: 20171112, end: 20171112
  6. AKINETON [Suspect]
     Active Substance: BIPERIDEN HYDROCHLORIDE
     Indication: Product used for unknown indication
     Route: 048
     Dates: start: 20171112, end: 20171112
  7. AKINETON [Suspect]
     Active Substance: BIPERIDEN HYDROCHLORIDE
     Route: 048
     Dates: start: 20171112, end: 20171112
  8. ZUCLOPENTHIXOL HYDROCHLORIDE [Suspect]
     Active Substance: ZUCLOPENTHIXOL HYDROCHLORIDE
     Indication: Product used for unknown indication
     Route: 048
     Dates: start: 20171112, end: 20171112
  9. LORAZEPAM [Suspect]
     Active Substance: LORAZEPAM
     Indication: Product used for unknown indication
     Dosage: 10 DOSAGE FORMS
     Route: 048
     Dates: start: 20171112, end: 20171112
  10. QUETIAPINE [Suspect]
     Active Substance: QUETIAPINE
     Indication: Product used for unknown indication
     Route: 048
     Dates: start: 20171112, end: 20171112
  11. QUETIAPINE [Suspect]
     Active Substance: QUETIAPINE
     Route: 048
     Dates: start: 20171112, end: 20171112
  12. LANSOPRAZOLE [Suspect]
     Active Substance: LANSOPRAZOLE
     Indication: Product used for unknown indication
     Route: 048
     Dates: start: 20171112, end: 20171112
  13. LORMETAZEPAM [Suspect]
     Active Substance: LORMETAZEPAM
     Indication: Product used for unknown indication
     Route: 048
     Dates: start: 20171112, end: 20171112
  14. LORMETAZEPAM [Suspect]
     Active Substance: LORMETAZEPAM
     Route: 048
     Dates: start: 20171112, end: 20171112
  15. LORMETAZEPAM [Suspect]
     Active Substance: LORMETAZEPAM
     Dosage: NUMBER OF UNITS IN THE INTERVAL = 1
     Route: 048
     Dates: start: 20171112, end: 20171112
  16. QUETIAPINE FUMARATE [Suspect]
     Active Substance: QUETIAPINE FUMARATE
     Indication: Product used for unknown indication
     Route: 048
     Dates: start: 20171112, end: 20171112
  17. LANSOPRAZOLE [Suspect]
     Active Substance: LANSOPRAZOLE
     Indication: Product used for unknown indication
     Route: 048
     Dates: start: 20171112, end: 20171112
  18. LANSOPRAZOLE [Suspect]
     Active Substance: LANSOPRAZOLE
     Route: 048
  19. LANSOPRAZOLE [Suspect]
     Active Substance: LANSOPRAZOLE
     Route: 048
  20. LANSOPRAZOLE [Suspect]
     Active Substance: LANSOPRAZOLE
     Route: 048
  21. LANSOPRAZOLE [Suspect]
     Active Substance: LANSOPRAZOLE
     Route: 048
  22. LANSOPRAZOLE [Suspect]
     Active Substance: LANSOPRAZOLE
     Route: 048
  23. LANSOPRAZOLE [Suspect]
     Active Substance: LANSOPRAZOLE
     Route: 048
  24. LANSOPRAZOLE [Suspect]
     Active Substance: LANSOPRAZOLE
     Route: 048
  25. LANSOPRAZOLE [Suspect]
     Active Substance: LANSOPRAZOLE
     Route: 048

REACTIONS (3)
  - Self-destructive behaviour [Unknown]
  - Intentional product misuse [Unknown]
  - Self-injurious ideation [Unknown]

NARRATIVE: CASE EVENT DATE: 20171112
